FAERS Safety Report 21153935 (Version 1)
Quarter: 2022Q3

REPORT INFORMATION
  Report Type: Spontaneous
  Country: CA (occurrence: None)
  Receive Date: 20220801
  Receipt Date: 20220801
  Transmission Date: 20221027
  Serious: Yes (Death)
  Sender: FDA-Public Use
  Company Number: CA-ROCHE-3148472

PATIENT
  Age: 28 Year
  Sex: Female

DRUGS (5)
  1. RITUXIMAB [Suspect]
     Active Substance: RITUXIMAB
     Indication: Relapsing-remitting multiple sclerosis
     Route: 042
  2. ACETAMINOPHEN [Concomitant]
     Active Substance: ACETAMINOPHEN
     Route: 048
  3. ESCITALOPRAM [Concomitant]
     Active Substance: ESCITALOPRAM OXALATE
     Route: 065
  4. GABAPENTIN [Concomitant]
     Active Substance: GABAPENTIN
     Route: 065
  5. METHYLPREDNISOLONE [Concomitant]
     Active Substance: METHYLPREDNISOLONE
     Route: 042

REACTIONS (14)
  - Abdominal pain [Fatal]
  - Administration site pain [Fatal]
  - Chest discomfort [Fatal]
  - Chest pain [Fatal]
  - Death [Fatal]
  - Dizziness [Fatal]
  - Dyspnoea [Fatal]
  - Fatigue [Fatal]
  - Hypersensitivity [Fatal]
  - Nausea [Fatal]
  - Off label use [Fatal]
  - Oral pruritus [Fatal]
  - Somnolence [Fatal]
  - Throat irritation [Fatal]
